FAERS Safety Report 9999594 (Version 1)
Quarter: 2014Q1

REPORT INFORMATION
  Report Type: Spontaneous
  Country: FR (occurrence: FR)
  Receive Date: 20140312
  Receipt Date: 20140312
  Transmission Date: 20141002
  Serious: Yes (Hospitalization)
  Sender: FDA-Public Use
  Company Number: FR-TEVA-467283ISR

PATIENT
  Age: 46 Year
  Sex: Male

DRUGS (2)
  1. AIROMIR [Suspect]
     Indication: ASTHMA
     Dates: end: 20140227
  2. SERETIDE DISKUS [Concomitant]
     Indication: ASTHMA
     Dosage: FOR YEARS

REACTIONS (4)
  - Dyspnoea [Recovered/Resolved]
  - Bronchospasm [Recovered/Resolved]
  - Foreign body aspiration [Recovered/Resolved]
  - Cough [Recovered/Resolved]
